FAERS Safety Report 7701989-5 (Version None)
Quarter: 2011Q3

REPORT INFORMATION
  Report Type: 
  Country: None (occurrence: None)
  Receive Date: 20110822
  Receipt Date: 20110812
  Transmission Date: 20111222
  Serious: Yes (Other)
  Sender: FDA-Public Use
  Company Number: PHHY2011JP70518

PATIENT
  Sex: Female

DRUGS (4)
  1. TRASTUZUMAB [Concomitant]
  2. ZOMETA [Suspect]
     Indication: METASTASES TO BONE
     Dosage: UNK UKN, UNK
     Route: 041
  3. XELODA [Concomitant]
     Dosage: UNK UKN, UNK
     Route: 065
  4. VINORELBINE TARTRATE [Concomitant]

REACTIONS (5)
  - PALMAR-PLANTAR ERYTHRODYSAESTHESIA SYNDROME [None]
  - CANCER PAIN [None]
  - NEOPLASM PROGRESSION [None]
  - NEOPLASM MALIGNANT [None]
  - PARONYCHIA [None]
